FAERS Safety Report 7394262-9 (Version None)
Quarter: 2011Q2

REPORT INFORMATION
  Report Type: 
  Country: None (occurrence: None)
  Receive Date: 20110405
  Receipt Date: 20110331
  Transmission Date: 20111010
  Serious: Yes (Disabling)
  Sender: FDA-Public Use
  Company Number: JP-ABBOTT-11P-087-0708968-00

PATIENT
  Age: 31 Year
  Sex: Male

DRUGS (8)
  1. EPIVIR [Suspect]
     Indication: ANTIRETROVIRAL THERAPY
  2. VIREAD [Suspect]
     Indication: HIV INFECTION
     Route: 048
     Dates: start: 20050112, end: 20070706
  3. KALETRA [Suspect]
     Indication: ANTIRETROVIRAL THERAPY
  4. EPIVIR [Suspect]
     Indication: HIV INFECTION
     Route: 048
     Dates: start: 20050112, end: 20070706
  5. ZERIT [Suspect]
     Indication: ANTIRETROVIRAL THERAPY
  6. ZERIT [Suspect]
     Indication: HIV INFECTION
     Route: 048
     Dates: start: 20050112, end: 20060727
  7. VIREAD [Suspect]
     Indication: ANTIRETROVIRAL THERAPY
  8. KALETRA [Suspect]
     Indication: HIV INFECTION
     Route: 048
     Dates: start: 20050112, end: 20070706

REACTIONS (1)
  - LATENT AUTOIMMUNE DIABETES IN ADULTS [None]
